FAERS Safety Report 23363438 (Version 3)
Quarter: 2024Q1

REPORT INFORMATION
  Report Type: Spontaneous
  Country: DE (occurrence: DE)
  Receive Date: 20240103
  Receipt Date: 20240306
  Transmission Date: 20240410
  Serious: Yes (Other)
  Sender: FDA-Public Use
  Company Number: DE-SUN PHARMACEUTICAL INDUSTRIES LTD-2023RR-422970

PATIENT
  Age: 82 Year
  Sex: Male

DRUGS (21)
  1. TERBINAFINE [Suspect]
     Active Substance: TERBINAFINE
     Indication: Body tinea
     Dosage: 250 MILLIGRAM, QW
     Route: 065
     Dates: start: 201504, end: 201611
  2. TERBINAFINE [Suspect]
     Active Substance: TERBINAFINE
     Indication: Onychomycosis
     Dosage: 250 MILLIGRAM
     Route: 065
     Dates: start: 201704, end: 201705
  3. TERBINAFINE [Suspect]
     Active Substance: TERBINAFINE
     Dosage: 250 MILLIGRAM, Q2W
     Route: 065
     Dates: start: 20180401, end: 20200611
  4. TERBINAFINE [Suspect]
     Active Substance: TERBINAFINE
     Dosage: 250 MILLIGRAM, QW
     Route: 065
     Dates: start: 20180401, end: 20200611
  5. TERBINAFINE [Suspect]
     Active Substance: TERBINAFINE
     Dosage: 500 MILLIGRAM, QW, 250 MILLIGRAM, 2/WEEK
     Route: 061
  6. TERBINAFINE [Suspect]
     Active Substance: TERBINAFINE
     Dosage: 250 MILLIGRAM, Q3D, 250 MILLIGRAM, EVERY 3 DAYS
     Route: 065
     Dates: start: 20210207
  7. VORICONAZOLE [Suspect]
     Active Substance: VORICONAZOLE
     Indication: Body tinea
     Dosage: 400 MILLIGRAM, QD
     Route: 065
     Dates: start: 201708, end: 201710
  8. VORICONAZOLE [Suspect]
     Active Substance: VORICONAZOLE
     Dosage: 200 MILLIGRAM
     Route: 065
     Dates: start: 201711, end: 201712
  9. FLUCONAZOLE [Suspect]
     Active Substance: FLUCONAZOLE
     Indication: Body tinea
     Dosage: 50 MILLIGRAM, QD
     Route: 065
     Dates: start: 201306, end: 201504
  10. FLUCONAZOLE [Suspect]
     Active Substance: FLUCONAZOLE
     Dosage: 200 MILLIGRAM, QW
     Route: 065
     Dates: start: 201504, end: 201611
  11. ITRACONAZOLE [Concomitant]
     Active Substance: ITRACONAZOLE
     Indication: Body tinea
     Dosage: 50 MILLIGRAM, QD
     Route: 065
     Dates: start: 201611, end: 201703
  12. ITRACONAZOLE [Concomitant]
     Active Substance: ITRACONAZOLE
     Dosage: 100 MILLIGRAM, QD
     Route: 065
     Dates: start: 20210315
  13. ITRACONAZOLE [Concomitant]
     Active Substance: ITRACONAZOLE
     Dosage: 100 MILLIGRAM, QW
     Route: 065
     Dates: start: 20210315
  14. ITRACONAZOLE [Concomitant]
     Active Substance: ITRACONAZOLE
     Dosage: UNK
     Route: 065
  15. BIFONAZOLE [Concomitant]
     Active Substance: BIFONAZOLE
     Indication: Body tinea
     Dosage: 1 DOSAGE FORM, QD
     Route: 061
     Dates: start: 201504
  16. BIFONAZOLE [Concomitant]
     Active Substance: BIFONAZOLE
     Indication: Nail operation
     Dosage: 1 PERCENT, UNK, 1 PERCENT
     Route: 065
     Dates: start: 201504, end: 201611
  17. BIFONAZOLE [Concomitant]
     Active Substance: BIFONAZOLE
     Dosage: 1 DOSAGE FORM, QD
     Route: 061
     Dates: start: 20200611
  18. CICLOPIROX OLAMINE [Concomitant]
     Active Substance: CICLOPIROX OLAMINE
     Indication: Body tinea
     Dosage: 1 DOSAGE FORM, QD
     Route: 065
     Dates: start: 201504, end: 201611
  19. CICLOPIROX OLAMINE [Concomitant]
     Active Substance: CICLOPIROX OLAMINE
     Dosage: 1 DOSAGE FORM, QD
     Route: 061
     Dates: start: 20200611
  20. UREA [Concomitant]
     Active Substance: UREA
     Indication: Body tinea
     Dosage: 40 PERCENT,
     Route: 065
     Dates: start: 201504, end: 201611
  21. UREA [Concomitant]
     Active Substance: UREA
     Dosage: 10 PERCENT
     Route: 065
     Dates: start: 20201106

REACTIONS (8)
  - Disease progression [Unknown]
  - Drug resistance [Unknown]
  - Adverse event [Unknown]
  - Dermatitis [Unknown]
  - Pruritus [Unknown]
  - Hepatic enzyme increased [Unknown]
  - Photosensitivity reaction [Unknown]
  - Drug ineffective [Unknown]
